FAERS Safety Report 10300476 (Version 3)
Quarter: 2014Q3

REPORT INFORMATION
  Report Type: Spontaneous
  Country: US (occurrence: US)
  Receive Date: 20140713
  Receipt Date: 20140813
  Transmission Date: 20150326
  Serious: Yes (Other)
  Sender: FDA-Public Use
  Company Number: PHHY2014US077432

PATIENT
  Sex: Male

DRUGS (24)
  1. L-LYSINE [Suspect]
     Active Substance: LYSINE
     Dosage: UNK UKN, BID (TAKE AS DIRECTED TWICE DAILY)
     Route: 048
     Dates: start: 20140122
  2. ADDERALL XR [Suspect]
     Active Substance: AMPHETAMINE ASPARTATE\AMPHETAMINE SULFATE\DEXTROAMPHETAMINE SACCHARATE\DEXTROAMPHETAMINE SULFATE
     Dosage: 1 DF, QD (1 CAP EACH AM ONCE A DAY)
     Route: 048
     Dates: start: 20131121
  3. MAGNESIUM GLYCINATE [Suspect]
     Active Substance: MAGNESIUM GLYCINATE
     Dosage: 2 DF, BID (2 PILLS TWICE DAILY)
     Dates: start: 20140312
  4. CYANOCOBALAMIN. [Suspect]
     Active Substance: CYANOCOBALAMIN
     Dosage: 1 DF, QD (1 TABLET ONCE A DAY)
     Route: 048
  5. VITAMIN E [Suspect]
     Active Substance: .ALPHA.-TOCOPHEROL
     Dosage: 3 DF, BID (3 DROPS TWICE DAILY)
     Route: 048
  6. LIORESAL [Suspect]
     Active Substance: BACLOFEN
     Indication: MUSCLE SPASTICITY
     Dosage: 184 UG/DAY
     Route: 037
     Dates: start: 20140423
  7. DIGESTIVE ENZYMES [Suspect]
     Active Substance: UNSPECIFIED INGREDIENT
     Dosage: 2 DF, UNK (2 TABLET; TAKE AS DIRECTED ONE TABLET BEFORE 2 LARGEST MEALS)
     Route: 048
     Dates: start: 20140312
  8. FINACEA [Suspect]
     Active Substance: AZELAIC ACID
     Dosage: 1 DF, BID (1 APPLICATION TO AFFECTED AREA EXTERNALLY TWICE A DAY)
  9. AMPYRA [Suspect]
     Active Substance: DALFAMPRIDINE
     Dosage: 1 DF, QD (RELEASE 12 HOUR; 1 TABLET ONCE A DAY)
     Route: 048
     Dates: start: 20140108
  10. FISH OIL [Suspect]
     Active Substance: FISH OIL
     Dosage: 2 TSP, QD (2 TEASPOON ONCE A DAY)
     Route: 048
  11. PROBIOTIC [Suspect]
     Active Substance: PROBIOTICS NOS
     Dosage: 1 DF, DAILY (1 CAPSULE; TAKEN AS DIRECTED DAILY)
     Route: 048
     Dates: start: 20140312
  12. GILENYA [Suspect]
     Active Substance: FINGOLIMOD HYDROCHLORIDE
     Dosage: 0.5 MG, QD
     Route: 048
     Dates: start: 20130805
  13. SENNA [Suspect]
     Active Substance: SENNA LEAF\SENNOSIDES\SENNOSIDES A AND B
     Dosage: 1 DF, PRN (1 TAB AS NEEDED)
     Route: 048
  14. STOOL SOFTENER [Suspect]
     Active Substance: DOCUSATE CALCIUM
     Dosage: 1 DF, QD (1 TABLET AS NEEDED ONCE A DAY)
     Route: 048
  15. ASPIRIN E.C [Suspect]
     Active Substance: ASPIRIN
     Dosage: 1 DF, QD (TABLET ONCE A DAY)
     Route: 048
  16. CIPRO [Suspect]
     Active Substance: CIPROFLOXACIN HYDROCHLORIDE
     Dosage: 1 DF, BID (1 TABLET EVERY 12 HOURS)
     Route: 048
     Dates: start: 20140613
  17. LOTREL [Suspect]
     Active Substance: AMLODIPINE BESYLATE\BENAZEPRIL HYDROCHLORIDE
     Dosage: 1 DF, QD (5-10MG CAPSULE; 1 CAPSULE ONCE A DAY)
     Route: 048
     Dates: start: 20130624
  18. MIRAPEX [Suspect]
     Active Substance: PRAMIPEXOLE DIHYDROCHLORIDE
     Dosage: UNK UKN, PRN (TAKE AS DIRECTED TITRATION TAKE 1 TAB FOR 4 DAYS, THEN 2 TABS 4 DAYS, THEN 3 TABS)
     Route: 048
  19. VITAMIN C [Suspect]
     Active Substance: ASCORBIC ACID
     Dosage: 2 DF, BID (2 DF TWICE DAILY)
     Route: 048
  20. VYTORIN [Suspect]
     Active Substance: EZETIMIBE\SIMVASTATIN
     Dosage: 1 DF, QD (1 TABLET ONCE A DAY)
     Route: 048
     Dates: start: 20140305
  21. VITAMIN D [Suspect]
     Active Substance: CHOLECALCIFEROL
     Dosage: 4 GTT, BID (TWICE A DAY)
     Route: 048
  22. ANDROGEL [Suspect]
     Active Substance: TESTOSTERONE
     Dosage: 2 DF, BID (2 PUMPS TWICE A DAY)
     Route: 062
  23. FLOMAX [Suspect]
     Active Substance: TAMSULOSIN HYDROCHLORIDE
     Dosage: 1 DF, QD (1 CAPSULE 30 MINUTES AFTER THE SAME MEAL EACH DAY ONCE A DAY AS NEEDED)
     Route: 048
  24. LECITHIN [Suspect]
     Active Substance: LECITHIN
     Dosage: 1 DF, BID (1 CAPSULE ORALLY TWICE DAILY)
     Dates: start: 20140122

REACTIONS (8)
  - Muscular weakness [Not Recovered/Not Resolved]
  - Muscle spasticity [None]
  - Nephrolithiasis [Not Recovered/Not Resolved]
  - Musculoskeletal stiffness [Not Recovered/Not Resolved]
  - Drug withdrawal syndrome [Not Recovered/Not Resolved]
  - Muscle spasticity [Not Recovered/Not Resolved]
  - Drug intolerance [Not Recovered/Not Resolved]
  - Constipation [Not Recovered/Not Resolved]
